FAERS Safety Report 26085488 (Version 1)
Quarter: 2025Q4

REPORT INFORMATION
  Report Type: Spontaneous
  Country: US (occurrence: US)
  Receive Date: 20251125
  Receipt Date: 20251125
  Transmission Date: 20260118
  Serious: Yes (Other)
  Sender: OTSUKA
  Company Number: US-MMM-Otsuka-QFLBH8MG

PATIENT
  Sex: Female

DRUGS (8)
  1. ABILIFY ASIMTUFII [Suspect]
     Active Substance: ARIPIPRAZOLE
     Indication: Product used for unknown indication
     Dosage: 720 MG
     Route: 065
  2. ABILIFY ASIMTUFII [Suspect]
     Active Substance: ARIPIPRAZOLE
  3. ABILIFY MAINTENA [Suspect]
     Active Substance: ARIPIPRAZOLE
     Indication: Product used for unknown indication
     Dosage: 300 MG
     Route: 065
  4. ABILIFY MAINTENA [Suspect]
     Active Substance: ARIPIPRAZOLE
  5. ABILIFY MAINTENA [Suspect]
     Active Substance: ARIPIPRAZOLE
  6. ABILIFY MAINTENA [Suspect]
     Active Substance: ARIPIPRAZOLE
  7. INGREZZA [Concomitant]
     Active Substance: VALBENAZINE DITOSYLATE
     Indication: Product used for unknown indication
     Dosage: UNK
     Route: 065
  8. INGREZZA [Concomitant]
     Active Substance: VALBENAZINE DITOSYLATE
     Dosage: UNK (PREVIOUS DOSE)
     Route: 065

REACTIONS (4)
  - Tardive dyskinesia [Not Recovered/Not Resolved]
  - Jaw disorder [Unknown]
  - Gait disturbance [Not Recovered/Not Resolved]
  - Drooling [Not Recovered/Not Resolved]

NARRATIVE: CASE EVENT DATE: 20250901
